FAERS Safety Report 17392898 (Version 5)
Quarter: 2022Q1

REPORT INFORMATION
  Report Type: Spontaneous
  Country: US (occurrence: US)
  Receive Date: 20200207
  Receipt Date: 20220321
  Transmission Date: 20220423
  Serious: No
  Sender: FDA-Public Use
  Company Number: US-SA-2020SA029956

PATIENT
  Age: 38 Year
  Sex: Female

DRUGS (2)
  1. DUPIXENT [Suspect]
     Active Substance: DUPILUMAB
     Indication: Dermatitis atopic
     Dosage: 300 MG, QOW
     Route: 058
     Dates: start: 20191113, end: 202001
  2. DUPIXENT [Suspect]
     Active Substance: DUPILUMAB
     Dosage: 300 MG, QOW
     Route: 058
     Dates: start: 2020

REACTIONS (6)
  - Influenza A virus test positive [Unknown]
  - Ocular hyperaemia [Not Recovered/Not Resolved]
  - Condition aggravated [Not Recovered/Not Resolved]
  - Rash [Unknown]
  - Dry eye [Unknown]
  - Dermatitis atopic [Unknown]

NARRATIVE: CASE EVENT DATE: 20201201
